FAERS Safety Report 7900045-0 (Version None)
Quarter: 2011Q4

REPORT INFORMATION
  Report Type: 
  Country: None (occurrence: None)
  Receive Date: 20111108
  Receipt Date: 20111027
  Transmission Date: 20120403
  Serious: Yes (Other)
  Sender: FDA-Public Use
  Company Number: US-BIOGENIDEC-2011BI036871

PATIENT
  Age: 1 Day
  Sex: Male
  Weight: 2 kg

DRUGS (1)
  1. TYSABRI [Suspect]
     Indication: MATERNAL EXPOSURE DURING PREGNANCY
     Route: 064
     Dates: start: 20080114, end: 20101210

REACTIONS (3)
  - CAESAREAN SECTION [None]
  - SMALL FOR DATES BABY [None]
  - MATERNAL DRUGS AFFECTING FOETUS [None]
